FAERS Safety Report 12892607 (Version 1)
Quarter: 2016Q4

REPORT INFORMATION
  Report Type: Report from Study
  Country: US (occurrence: US)
  Receive Date: 20161028
  Receipt Date: 20161028
  Transmission Date: 20170207
  Serious: Yes (Hospitalization, Other)
  Sender: FDA-Public Use
  Company Number: US-BAYER-2016-185766

PATIENT
  Age: 67 Year
  Sex: Male

DRUGS (2)
  1. NEXAVAR [Suspect]
     Active Substance: SORAFENIB
     Indication: THYROID CANCER
     Dosage: 400 MG, BID
     Route: 048
     Dates: start: 20160713, end: 2016
  2. LOVENOX [Concomitant]
     Active Substance: ENOXAPARIN SODIUM

REACTIONS (5)
  - Gait disturbance [None]
  - Muscle haemorrhage [Recovering/Resolving]
  - Retroperitoneal haemorrhage [Recovering/Resolving]
  - Blood pressure increased [None]
  - Peripheral swelling [None]

NARRATIVE: CASE EVENT DATE: 2016
